FAERS Safety Report 9187653 (Version 1)
Quarter: 2013Q1

REPORT INFORMATION
  Report Type: Spontaneous
  Country: NL (occurrence: NL)
  Receive Date: 20130325
  Receipt Date: 20130325
  Transmission Date: 20140127
  Serious: Yes (Hospitalization, Other)
  Sender: FDA-Public Use
  Company Number: PHHY2013NL026812

PATIENT
  Age: 53 Year
  Sex: Female

DRUGS (4)
  1. VENLAFAXINE [Suspect]
     Indication: DEPRESSION
  2. CITALOPRAM [Suspect]
  3. AMITRIPTYLINE [Suspect]
  4. LORAZEPAM [Concomitant]

REACTIONS (6)
  - Haemodynamic instability [Unknown]
  - Depressed level of consciousness [Unknown]
  - Respiratory acidosis [Unknown]
  - Toxicity to various agents [Unknown]
  - Heart rate decreased [Recovered/Resolved]
  - Overdose [Unknown]
